FAERS Safety Report 23306275 (Version 4)
Quarter: 2024Q1

REPORT INFORMATION
  Report Type: Spontaneous
  Country: DE (occurrence: DE)
  Receive Date: 20231218
  Receipt Date: 20240209
  Transmission Date: 20240409
  Serious: Yes (Other)
  Sender: FDA-Public Use
  Company Number: DE-BAYER-2023A175067

PATIENT
  Age: 77 Year
  Sex: Male
  Weight: 75 kg

DRUGS (141)
  1. MOMETASONE FUROATE [Suspect]
     Active Substance: MOMETASONE FUROATE
     Indication: Product used for unknown indication
     Dosage: UNK
  2. MOMETASONE FUROATE [Suspect]
     Active Substance: MOMETASONE FUROATE
     Indication: Product used for unknown indication
     Dosage: UNK
  3. MOMETASONE FUROATE [Suspect]
     Active Substance: MOMETASONE FUROATE
     Dosage: UNK
  4. MOMETASONE FUROATE [Suspect]
     Active Substance: MOMETASONE FUROATE
     Indication: Product used for unknown indication
     Dosage: UNK
  5. TAMSULOSIN [Suspect]
     Active Substance: TAMSULOSIN
     Indication: Product used for unknown indication
     Dosage: UNK
  6. IBUPROFEN [Suspect]
     Active Substance: IBUPROFEN
     Indication: Product used for unknown indication
     Dosage: UNK UNK, AS NEEDED (PRN)
  7. GINKGO [Suspect]
     Active Substance: GINKGO
     Indication: Product used for unknown indication
     Dosage: UNK, BID, (STRENGHT 500) (1-0-1)BID
  8. ALBUTEROL [Suspect]
     Active Substance: ALBUTEROL
     Indication: Secretion discharge
     Dosage: UNK
  9. TADALAFIL [Suspect]
     Active Substance: TADALAFIL
     Indication: Product used for unknown indication
     Dosage: UNK
  10. IBUPROFEN [Suspect]
     Active Substance: IBUPROFEN
     Indication: Product used for unknown indication
     Dosage: UNK
  11. IBUPROFEN [Suspect]
     Active Substance: IBUPROFEN
     Indication: Product used for unknown indication
     Dosage: UNK
  12. IBUPROFEN [Suspect]
     Active Substance: IBUPROFEN
     Indication: Product used for unknown indication
     Dosage: UNK
  13. GELATIN\POTASSIUM CHLORIDE\SODIUM CHLORIDE [Suspect]
     Active Substance: GELATIN\POTASSIUM CHLORIDE\SODIUM CHLORIDE
     Indication: Dyspnoea
     Dosage: 10 GTT DROPS, QD
  14. GELATIN\POTASSIUM CHLORIDE\SODIUM CHLORIDE [Suspect]
     Active Substance: GELATIN\POTASSIUM CHLORIDE\SODIUM CHLORIDE
     Indication: Nasopharyngitis
  15. GELATIN\POTASSIUM CHLORIDE\SODIUM CHLORIDE [Suspect]
     Active Substance: GELATIN\POTASSIUM CHLORIDE\SODIUM CHLORIDE
     Indication: Product used for unknown indication
  16. GELATIN\POTASSIUM CHLORIDE\SODIUM CHLORIDE [Suspect]
     Active Substance: GELATIN\POTASSIUM CHLORIDE\SODIUM CHLORIDE
     Indication: Bronchitis
  17. GELATIN\POTASSIUM CHLORIDE\SODIUM CHLORIDE [Suspect]
     Active Substance: GELATIN\POTASSIUM CHLORIDE\SODIUM CHLORIDE
     Indication: Pneumothorax
  18. GELATIN\POTASSIUM CHLORIDE\SODIUM CHLORIDE [Suspect]
     Active Substance: GELATIN\POTASSIUM CHLORIDE\SODIUM CHLORIDE
     Indication: Asthma
  19. GELATIN\POTASSIUM CHLORIDE\SODIUM CHLORIDE [Suspect]
     Active Substance: GELATIN\POTASSIUM CHLORIDE\SODIUM CHLORIDE
     Indication: Dysphonia
  20. GELATIN\POTASSIUM CHLORIDE\SODIUM CHLORIDE [Suspect]
     Active Substance: GELATIN\POTASSIUM CHLORIDE\SODIUM CHLORIDE
     Indication: Cough
  21. XARELTO [Suspect]
     Active Substance: RIVAROXABAN
     Indication: Product used for unknown indication
     Dosage: UNK
  22. XARELTO [Suspect]
     Active Substance: RIVAROXABAN
     Indication: Product used for unknown indication
     Dosage: UNK
  23. ACETIC ACID\DELTAMETHRIN [Suspect]
     Active Substance: ACETIC ACID\DELTAMETHRIN
     Indication: Product used for unknown indication
     Dosage: 500 IU, Q12HUNK UNK, UNKNOW
  24. CIALIS [Suspect]
     Active Substance: TADALAFIL
     Indication: Product used for unknown indication
     Dosage: UNK
  25. CLOPIDOGREL [Suspect]
     Active Substance: CLOPIDOGREL BISULFATE
     Indication: Product used for unknown indication
     Dosage: UNK UNK, DAILY BID (1-0-1)
  26. ERGOCALCIFEROL [Suspect]
     Active Substance: ERGOCALCIFEROL
     Indication: Product used for unknown indication
     Dosage: 2000 INTERNATIONAL UNIT
  27. MAGNESIUM ASPARTATE\POTASSIUM ASPARTATE [Suspect]
     Active Substance: MAGNESIUM ASPARTATE\POTASSIUM ASPARTATE
     Dosage: UNK
  28. CALCIUM CARBONATE [Suspect]
     Active Substance: CALCIUM CARBONATE
     Indication: Product used for unknown indication
     Dosage: UNK (1 IN 1.5 DAY UNK, CALCIUM HEXAL (CALCIUM CARBONATE))
  29. CALCIUM CARBONATE [Suspect]
     Active Substance: CALCIUM CARBONATE
     Dosage: UNK ,500 MG BID(1
  30. OLMESARTAN MEDOXOMIL [Concomitant]
     Active Substance: OLMESARTAN MEDOXOMIL
     Indication: Product used for unknown indication
     Dosage: UNK
  31. OLMESARTAN MEDOXOMIL [Concomitant]
     Active Substance: OLMESARTAN MEDOXOMIL
     Dosage: UNK
  32. HERBALS [Concomitant]
     Active Substance: HERBALS
     Indication: Bronchitis
     Dosage: 10 GTT DROPS, QD
  33. HERBALS [Concomitant]
     Active Substance: HERBALS
     Indication: Asthma
  34. MAGNESIUM OROTATE [Suspect]
     Active Substance: MAGNESIUM OROTATE
     Indication: Product used for unknown indication
     Dosage: UNK UNK, DAILY (TID (3-2-3))
  35. MAGNESIUM OROTATE [Suspect]
     Active Substance: MAGNESIUM OROTATE
     Indication: Product used for unknown indication
     Dosage: UNK
  36. FLUTICASONE PROPIONATE [Suspect]
     Active Substance: FLUTICASONE PROPIONATE
     Indication: Pneumothorax
     Dosage: UNK
  37. FLUTICASONE PROPIONATE [Suspect]
     Active Substance: FLUTICASONE PROPIONATE
     Indication: Secretion discharge
  38. FLUTICASONE PROPIONATE [Suspect]
     Active Substance: FLUTICASONE PROPIONATE
     Indication: Cough
  39. FLUTICASONE PROPIONATE [Suspect]
     Active Substance: FLUTICASONE PROPIONATE
     Indication: Dyspnoea
  40. FLUTICASONE PROPIONATE [Suspect]
     Active Substance: FLUTICASONE PROPIONATE
     Indication: Dysphonia
  41. FLUTICASONE PROPIONATE [Suspect]
     Active Substance: FLUTICASONE PROPIONATE
     Indication: Nasopharyngitis
  42. FLUTICASONE PROPIONATE\SALMETEROL XINAFOATE [Suspect]
     Active Substance: FLUTICASONE PROPIONATE\SALMETEROL XINAFOATE
     Indication: Dyspnoea
     Dosage: UNK
  43. FLUTICASONE PROPIONATE\SALMETEROL XINAFOATE [Suspect]
     Active Substance: FLUTICASONE PROPIONATE\SALMETEROL XINAFOATE
     Indication: Secretion discharge
  44. FLUTICASONE PROPIONATE\SALMETEROL XINAFOATE [Suspect]
     Active Substance: FLUTICASONE PROPIONATE\SALMETEROL XINAFOATE
     Indication: Dysphonia
  45. FLUTICASONE PROPIONATE\SALMETEROL XINAFOATE [Suspect]
     Active Substance: FLUTICASONE PROPIONATE\SALMETEROL XINAFOATE
     Indication: Pneumothorax
  46. FLUTICASONE PROPIONATE\SALMETEROL XINAFOATE [Suspect]
     Active Substance: FLUTICASONE PROPIONATE\SALMETEROL XINAFOATE
     Indication: Cough
  47. FLUTICASONE PROPIONATE\SALMETEROL XINAFOATE [Suspect]
     Active Substance: FLUTICASONE PROPIONATE\SALMETEROL XINAFOATE
     Indication: Nasopharyngitis
  48. COLESEVELAM [Suspect]
     Active Substance: COLESEVELAM
     Indication: Product used for unknown indication
     Dosage: UNK
  49. DIETARY SUPPLEMENT [Suspect]
     Active Substance: DIETARY SUPPLEMENT
     Indication: Product used for unknown indication
     Dosage: UNK UNK, EVERY 8 HRS
  50. DIETARY SUPPLEMENT [Suspect]
     Active Substance: DIETARY SUPPLEMENT
     Dosage: UNK UNK, UNKNOWN (2-0-1) TID
  51. TOCOPHEROL [Suspect]
     Active Substance: TOCOPHEROL
     Indication: Product used for unknown indication
     Dosage: 20000 IU
  52. ATROVENT [Suspect]
     Active Substance: IPRATROPIUM BROMIDE
     Indication: Dysphonia
     Dosage: UNK UNK, UNKNOWN FREQ.
     Dates: start: 2018
  53. ATROVENT [Suspect]
     Active Substance: IPRATROPIUM BROMIDE
     Indication: Nasopharyngitis
  54. ATROVENT [Suspect]
     Active Substance: IPRATROPIUM BROMIDE
     Indication: Nasopharyngitis
  55. ATROVENT [Suspect]
     Active Substance: IPRATROPIUM BROMIDE
     Indication: Cough
  56. ATROVENT [Suspect]
     Active Substance: IPRATROPIUM BROMIDE
     Indication: Secretion discharge
  57. ATROVENT [Suspect]
     Active Substance: IPRATROPIUM BROMIDE
     Indication: Chest discomfort
  58. ATROVENT [Suspect]
     Active Substance: IPRATROPIUM BROMIDE
     Indication: Pneumothorax
  59. ATROVENT [Suspect]
     Active Substance: IPRATROPIUM BROMIDE
     Indication: Secretion discharge
  60. ATROVENT [Suspect]
     Active Substance: IPRATROPIUM BROMIDE
     Indication: Dyspnoea
  61. MOMETASONE FUROATE [Suspect]
     Active Substance: MOMETASONE FUROATE
     Indication: Product used for unknown indication
     Dosage: 2 DOSAGE FORM, BID (2 PUFF(S), BID 1-0-1)
  62. OLMESARTAN MEDOXOMIL [Concomitant]
     Active Substance: OLMESARTAN MEDOXOMIL
     Indication: Product used for unknown indication
     Dosage: UNK
  63. OLMESARTAN MEDOXOMIL [Concomitant]
     Active Substance: OLMESARTAN MEDOXOMIL
     Indication: Product used for unknown indication
     Dosage: UNK
  64. DICLOFENAC [Suspect]
     Active Substance: DICLOFENAC
     Indication: Product used for unknown indication
     Dosage: UNK
  65. PREDNISOLONE [Concomitant]
     Active Substance: PREDNISOLONE
     Indication: Product used for unknown indication
     Dosage: UNK
  66. PREDNISOLONE [Concomitant]
     Active Substance: PREDNISOLONE
     Indication: Product used for unknown indication
     Dosage: UNK
  67. PRALUENT [Suspect]
     Active Substance: ALIROCUMAB
     Indication: Product used for unknown indication
     Dosage: UNK UNK, UNKNOWN 75 UNK
  68. DICLOFENAC DIETHYLAMINE [Suspect]
     Active Substance: DICLOFENAC DIETHYLAMINE
     Indication: Product used for unknown indication
     Dosage: UNK
  69. MAGNESIUM ASPARTATE\POTASSIUM ASPARTATE [Suspect]
     Active Substance: MAGNESIUM ASPARTATE\POTASSIUM ASPARTATE
     Indication: Product used for unknown indication
     Dosage: UNK
  70. CALCIUM CARBONATE [Concomitant]
     Active Substance: CALCIUM CARBONATE
     Indication: Product used for unknown indication
     Dosage: UNK
  71. CALCIUM CARBONATE [Concomitant]
     Active Substance: CALCIUM CARBONATE
     Indication: Product used for unknown indication
     Dosage: UNK
  72. ASPIRIN [Suspect]
     Active Substance: ASPIRIN
     Indication: Product used for unknown indication
     Dosage: STRENGTH: 100 MG
  73. HERBALS [Suspect]
     Active Substance: HERBALS
     Indication: Product used for unknown indication
     Dosage: UNK
  74. CLOPIDOGREL BISULFATE [Suspect]
     Active Substance: CLOPIDOGREL BISULFATE
     Indication: Product used for unknown indication
     Dosage: UNK
  75. AMBROXOL HYDROCHLORIDE [Suspect]
     Active Substance: AMBROXOL HYDROCHLORIDE
     Indication: Product used for unknown indication
     Dosage: UNK
  76. CRESTOR [Suspect]
     Active Substance: ROSUVASTATIN CALCIUM
     Indication: Product used for unknown indication
     Dosage: UNK
  77. SALMETEROL [Suspect]
     Active Substance: SALMETEROL
     Indication: Nasopharyngitis
     Dosage: UNK
  78. SALMETEROL [Suspect]
     Active Substance: SALMETEROL
     Indication: Pneumothorax
  79. SALMETEROL [Suspect]
     Active Substance: SALMETEROL
     Indication: Pneumothorax
  80. SALMETEROL [Suspect]
     Active Substance: SALMETEROL
     Indication: Secretion discharge
  81. SALMETEROL [Suspect]
     Active Substance: SALMETEROL
     Indication: Secretion discharge
  82. SALMETEROL [Suspect]
     Active Substance: SALMETEROL
     Indication: Dyspnoea
  83. CALCIUM [Suspect]
     Active Substance: CALCIUM
     Indication: Product used for unknown indication
     Dosage: 1000 MG
  84. BISOPROLOL [Suspect]
     Active Substance: BISOPROLOL\BISOPROLOL FUMARATE
     Indication: Product used for unknown indication
     Dosage: UNK, DAILY, QD (1-0-0)
  85. ALBUTEROL SULFATE [Suspect]
     Active Substance: ALBUTEROL SULFATE
     Indication: Pneumothorax
     Dosage: UNK
  86. ALBUTEROL SULFATE [Suspect]
     Active Substance: ALBUTEROL SULFATE
     Indication: Dysphonia
  87. ALBUTEROL SULFATE [Suspect]
     Active Substance: ALBUTEROL SULFATE
     Indication: Pneumothorax
  88. ALBUTEROL SULFATE [Suspect]
     Active Substance: ALBUTEROL SULFATE
     Indication: Chest discomfort
  89. ALBUTEROL SULFATE [Suspect]
     Active Substance: ALBUTEROL SULFATE
     Indication: Secretion discharge
  90. ALBUTEROL SULFATE [Suspect]
     Active Substance: ALBUTEROL SULFATE
     Indication: Nasopharyngitis
  91. ALBUTEROL SULFATE [Suspect]
     Active Substance: ALBUTEROL SULFATE
     Indication: Productive cough
  92. .ALPHA.-TOCOPHEROL ACETATE, DL- [Suspect]
     Active Substance: .ALPHA.-TOCOPHEROL ACETATE, DL-
     Indication: Product used for unknown indication
     Dosage: 1 DF, QW
  93. .ALPHA.-TOCOPHEROL ACETATE, DL- [Suspect]
     Active Substance: .ALPHA.-TOCOPHEROL ACETATE, DL-
     Indication: Product used for unknown indication
     Dosage: 20000 IU, OW
  94. EVOLOCUMAB [Concomitant]
     Active Substance: EVOLOCUMAB
     Indication: Product used for unknown indication
     Dosage: UNK, Q3W
  95. CALCIUM PANTOTHENATE [Suspect]
     Active Substance: CALCIUM PANTOTHENATE
     Indication: Product used for unknown indication
     Dosage: UNK UNK, EVERY 8 HRS
  96. ROSUVASTATIN CALCIUM [Suspect]
     Active Substance: ROSUVASTATIN CALCIUM
     Indication: Product used for unknown indication
     Dosage: UNK
  97. ASPIRIN CALCIUM [Suspect]
     Active Substance: ASPIRIN CALCIUM
     Indication: Product used for unknown indication
     Dosage: UNK
  98. COLESEVELAM HYDROCHLORIDE [Suspect]
     Active Substance: COLESEVELAM HYDROCHLORIDE
     Indication: Product used for unknown indication
     Dosage: UNK
  99. GINKGO [Suspect]
     Active Substance: GINKGO
     Indication: Product used for unknown indication
     Dosage: UNK, BID
  100. AMBROXOL HYDROCHLORIDE [Concomitant]
     Active Substance: AMBROXOL HYDROCHLORIDE
     Indication: Product used for unknown indication
     Dosage: UNK
  101. AMBROXOL HYDROCHLORIDE [Concomitant]
     Active Substance: AMBROXOL HYDROCHLORIDE
     Indication: Product used for unknown indication
     Dosage: UNK
  102. REPATHA [Concomitant]
     Active Substance: EVOLOCUMAB
     Indication: Product used for unknown indication
     Dosage: 1 IN 1 WEEK
  103. BIOTIN [Suspect]
     Active Substance: BIOTIN
     Indication: Dysphonia
     Dosage: 1 DF, QD
  104. BIOTIN [Suspect]
     Active Substance: BIOTIN
     Indication: Dysphonia
     Dosage: UNK
  105. BIOTIN [Suspect]
     Active Substance: BIOTIN
     Indication: Secretion discharge
     Dosage: UNK
  106. BIOTIN [Suspect]
     Active Substance: BIOTIN
     Indication: Chest discomfort
     Dosage: UNK
  107. BIOTIN [Suspect]
     Active Substance: BIOTIN
     Indication: Product used for unknown indication
     Dosage: 10 DF, QD
  108. BIOTIN [Suspect]
     Active Substance: BIOTIN
     Indication: Nasopharyngitis
     Dosage: UNK
  109. BIOTIN [Suspect]
     Active Substance: BIOTIN
     Indication: Dysphonia
     Dosage: UNK
  110. BIOTIN [Suspect]
     Active Substance: BIOTIN
     Indication: Product used for unknown indication
     Dosage: UNK
  111. BIOTIN [Suspect]
     Active Substance: BIOTIN
     Indication: Cough
     Dosage: UNK
  112. BIOTIN [Suspect]
     Active Substance: BIOTIN
     Indication: Cough
     Dosage: UNK
  113. BIOTIN [Suspect]
     Active Substance: BIOTIN
     Indication: Bronchitis
     Dosage: UNK
  114. BIOTIN [Suspect]
     Active Substance: BIOTIN
     Indication: Product used for unknown indication
     Dosage: UNK
  115. BIOTIN [Suspect]
     Active Substance: BIOTIN
     Indication: Product used for unknown indication
     Dosage: UNK
  116. BIOTIN [Suspect]
     Active Substance: BIOTIN
     Indication: Product used for unknown indication
     Dosage: UNK
  117. BIOTIN [Suspect]
     Active Substance: BIOTIN
     Indication: Dyspnoea
     Dosage: UNK
  118. BIOTIN [Suspect]
     Active Substance: BIOTIN
     Indication: Product used for unknown indication
     Dosage: UNK
  119. BIOTIN [Suspect]
     Active Substance: BIOTIN
     Indication: Asthma
     Dosage: 2 DF, BID
  120. BIOTIN [Suspect]
     Active Substance: BIOTIN
     Indication: Dysphonia
     Dosage: 1 DF, TID
  121. BIOTIN [Suspect]
     Active Substance: BIOTIN
     Indication: Chest discomfort
     Dosage: 1 DF, OW
  122. BIOTIN [Suspect]
     Active Substance: BIOTIN
     Indication: Pneumothorax
     Dosage: 1000 MG, UNK
  123. BIOTIN [Suspect]
     Active Substance: BIOTIN
     Indication: Pneumothorax
     Dosage: UNK
  124. BIOTIN [Suspect]
     Active Substance: BIOTIN
     Dosage: UNK
  125. BIOTIN [Suspect]
     Active Substance: BIOTIN
     Dosage: UNK
  126. BIOTIN [Suspect]
     Active Substance: BIOTIN
     Dosage: UNK
  127. BIOTIN [Suspect]
     Active Substance: BIOTIN
     Dosage: UNK
  128. BIOTIN [Suspect]
     Active Substance: BIOTIN
     Dosage: UNK
  129. BIOTIN [Suspect]
     Active Substance: BIOTIN
     Dosage: UNK
  130. BIOTIN [Suspect]
     Active Substance: BIOTIN
     Dosage: UNK
  131. BIOTIN [Suspect]
     Active Substance: BIOTIN
     Dosage: 2000 IU, UNK
  132. BIOTIN [Suspect]
     Active Substance: BIOTIN
     Dosage: 20000 INTERNATIONAL UNIT
  133. BIOTIN [Suspect]
     Active Substance: BIOTIN
     Dosage: UNK
  134. BIOTIN [Suspect]
     Active Substance: BIOTIN
     Dosage: UNK
  135. BIOTIN [Suspect]
     Active Substance: BIOTIN
     Dosage: UNK
  136. BIOTIN [Suspect]
     Active Substance: BIOTIN
     Dosage: UNK
  137. BIOTIN [Suspect]
     Active Substance: BIOTIN
     Dosage: UNK
  138. BIOTIN [Suspect]
     Active Substance: BIOTIN
     Dosage: UNK
  139. MOMETASONE [Suspect]
     Active Substance: MOMETASONE
     Indication: Product used for unknown indication
     Dosage: UNK
  140. HERBALS [Concomitant]
     Active Substance: HERBALS
  141. PEPPERMINT OIL [Concomitant]
     Active Substance: PEPPERMINT OIL

REACTIONS (27)
  - Dysphonia [Not Recovered/Not Resolved]
  - Exostosis [Unknown]
  - Myoglobin blood increased [Unknown]
  - Plantar fasciitis [Unknown]
  - Obstructive airways disorder [Unknown]
  - Nasopharyngitis [Unknown]
  - Atrial fibrillation [Recovered/Resolved]
  - Increased upper airway secretion [Unknown]
  - Obstructive sleep apnoea syndrome [Unknown]
  - Brain natriuretic peptide increased [Unknown]
  - Dyspnoea [Unknown]
  - Muscle spasms [Unknown]
  - Cardiac disorder [Unknown]
  - Obstructive airways disorder [Unknown]
  - Pneumothorax [Not Recovered/Not Resolved]
  - Eosinophilia [Unknown]
  - Muscle spasms [Unknown]
  - Wheezing [Unknown]
  - Fractional exhaled nitric oxide increased [Recovered/Resolved]
  - Cough [Not Recovered/Not Resolved]
  - Chest discomfort [Not Recovered/Not Resolved]
  - Coronary artery disease [Unknown]
  - Nasopharyngitis [Unknown]
  - Dyspnoea exertional [Unknown]
  - Plantar fasciitis [Unknown]
  - Chest discomfort [Unknown]
  - Sensation of foreign body [Unknown]

NARRATIVE: CASE EVENT DATE: 20180101
